FAERS Safety Report 4422046-X (Version None)
Quarter: 2004Q3

REPORT INFORMATION
  Report Type: 
  Country: None (occurrence: None)
  Receive Date: 20040809
  Receipt Date: 20040719
  Transmission Date: 20050211
  Serious: No
  Sender: FDA-Public Use
  Company Number: USA040773111

PATIENT
  Age: 59 Year
  Sex: Male

DRUGS (5)
  1. ZYPREXA [Suspect]
     Indication: AGITATION
     Dosage: 10 MG
     Dates: start: 20040716
  2. ZYPREXA [Suspect]
     Indication: MANIA
     Dosage: 10 MG
     Dates: start: 20040716
  3. ZYPREXA [Suspect]
     Indication: BIPOLAR DISORDER
     Dosage: 30 MG DAY
     Dates: start: 20040701
  4. RISPERDAL [Concomitant]
  5. ATIVAN [Concomitant]

REACTIONS (1)
  - SEDATION [None]
